FAERS Safety Report 11065153 (Version 2)
Quarter: 2015Q2

REPORT INFORMATION
  Report Type: Spontaneous
  Country: US (occurrence: US)
  Receive Date: 20150424
  Receipt Date: 20150525
  Transmission Date: 20150821
  Serious: No
  Sender: FDA-Public Use
  Company Number: US-JNJFOC-20140904353

PATIENT
  Sex: Female
  Weight: 92.53 kg

DRUGS (2)
  1. NUCYNTA ER [Suspect]
     Active Substance: TAPENTADOL HYDROCHLORIDE
     Indication: ARTHRALGIA
     Dosage: THREE TIMES DAILY
     Route: 048
     Dates: start: 201407
  2. NUCYNTA ER [Suspect]
     Active Substance: TAPENTADOL HYDROCHLORIDE
     Indication: ARTHRALGIA
     Dosage: TWICE DAILY
     Route: 048
     Dates: start: 2014, end: 201407

REACTIONS (1)
  - Drug ineffective [Not Recovered/Not Resolved]

NARRATIVE: CASE EVENT DATE: 2014
